FAERS Safety Report 20096979 (Version 1)
Quarter: 2021Q4

REPORT INFORMATION
  Report Type: Report from Study
  Country: US (occurrence: US)
  Receive Date: 20211122
  Receipt Date: 20211122
  Transmission Date: 20220303
  Serious: Yes (Other)
  Sender: FDA-Public Use
  Company Number: US-ABBVIE-21K-163-4168936-00

PATIENT
  Sex: Female

DRUGS (2)
  1. DUOPA [Suspect]
     Active Substance: CARBIDOPA\LEVODOPA
     Indication: Parkinson^s disease
     Route: 050
  2. DUOPA [Suspect]
     Active Substance: CARBIDOPA\LEVODOPA

REACTIONS (12)
  - Gallbladder disorder [Unknown]
  - Sleep terror [Unknown]
  - Joint range of motion decreased [Unknown]
  - Stress [Unknown]
  - Contusion [Unknown]
  - Weight decreased [Unknown]
  - Dizziness [Unknown]
  - Dyskinesia [Unknown]
  - Confusional state [Unknown]
  - Constipation [Unknown]
  - On and off phenomenon [Unknown]
  - Freezing phenomenon [Unknown]

NARRATIVE: CASE EVENT DATE: 20180101
